FAERS Safety Report 8891336 (Version 1)
Quarter: 2012Q4

REPORT INFORMATION
  Report Type: Spontaneous
  Country: US (occurrence: None)
  Receive Date: 20121105
  Receipt Date: 20121105
  Transmission Date: 20130627
  Serious: Yes (Other)
  Sender: FDA-Public Use
  Company Number: None

PATIENT
  Sex: Female
  Weight: 21.77 kg

DRUGS (1)
  1. MONTELUKAST SODIUM [Suspect]
     Indication: EUSTACHIAN TUBE DISORDER
     Route: 048
     Dates: start: 201208

REACTIONS (1)
  - Nausea [None]
